FAERS Safety Report 10264492 (Version 1)
Quarter: 2014Q2

REPORT INFORMATION
  Report Type: Spontaneous
  Country: US (occurrence: US)
  Receive Date: 20140627
  Receipt Date: 20140627
  Transmission Date: 20141212
  Serious: Yes (Hospitalization)
  Sender: FDA-Public Use
  Company Number: US-BAYER-2014-094793

PATIENT
  Age: 47 Year
  Sex: Female
  Weight: 53.5 kg

DRUGS (7)
  1. YAZ [Suspect]
     Dosage: UNK
  2. YAZ [Suspect]
     Dosage: UNK
     Route: 048
     Dates: start: 20081206, end: 20090509
  3. YASMIN [Suspect]
     Dosage: UNK
  4. YASMIN [Suspect]
     Dosage: UNK
  5. EFFEXOR [Concomitant]
     Dosage: 75 MG, DAILY
     Route: 048
  6. LEVOTHROID [Concomitant]
     Dosage: 75 ?G, DAILY
     Route: 048
  7. WELLBUTRIN [Concomitant]
     Dosage: 75 MG, BID

REACTIONS (3)
  - Pulmonary embolism [None]
  - Deep vein thrombosis [None]
  - Thrombophlebitis superficial [None]
